FAERS Safety Report 8560240-7 (Version None)
Quarter: 2012Q3

REPORT INFORMATION
  Report Type: 
  Country: None (occurrence: None)
  Receive Date: 20120802
  Receipt Date: 20120727
  Transmission Date: 20120928
  Serious: Yes (Disabling)
  Sender: FDA-Public Use
  Company Number: US-ROCHE-1082781

PATIENT
  Sex: Male
  Weight: 67 kg

DRUGS (7)
  1. PEGASYS [Suspect]
     Dosage: REDUCED DOSAGE
     Dates: start: 20120320, end: 20120528
  2. PEGASYS [Suspect]
     Dates: start: 20120528
  3. PEGASYS [Suspect]
     Dosage: REDUCED DOSAGE
     Dates: start: 20120206, end: 20120320
  4. COPEGUS [Suspect]
     Indication: HEPATITIS C
     Dates: start: 20110708
  5. RO 5466731 (HCV NS5B INHIBITOR) [Suspect]
     Indication: HEPATITIS C
     Dosage: LOADING DOSE
     Dates: start: 20110708, end: 20120604
  6. PEGASYS [Suspect]
     Indication: HEPATITIS C
     Dates: start: 20110708, end: 20120206
  7. COPEGUS [Suspect]
     Dates: start: 20120604

REACTIONS (1)
  - PERICARDITIS [None]
